FAERS Safety Report 20416540 (Version 1)
Quarter: 2022Q1

REPORT INFORMATION
  Report Type: Spontaneous
  Country: US (occurrence: US)
  Receive Date: 20220202
  Receipt Date: 20220202
  Transmission Date: 20220424
  Serious: Yes (Other)
  Sender: FDA-Public Use
  Company Number: US-Fresenius Kabi-FK202201165

PATIENT

DRUGS (1)
  1. GENTAMICIN [Suspect]
     Active Substance: GENTAMICIN
     Indication: Prophylaxis
     Route: 065

REACTIONS (1)
  - Renal failure [Recovered/Resolved]
